FAERS Safety Report 12849308 (Version 1)
Quarter: 2016Q4

REPORT INFORMATION
  Report Type: Spontaneous
  Country: IN (occurrence: IN)
  Receive Date: 20161014
  Receipt Date: 20161014
  Transmission Date: 20170207
  Serious: Yes (Death, Life-Threatening, Other)
  Sender: FDA-Public Use
  Company Number: IN-AKORN PHARMACEUTICALS-2016AKN00692

PATIENT
  Age: 32 Year
  Sex: Female

DRUGS (3)
  1. ISONIAZIDE [Concomitant]
     Active Substance: ISONIAZID
     Indication: TUBERCULOSIS
     Dosage: 300 MG, ONCE
  2. RIFAMPIN. [Suspect]
     Active Substance: RIFAMPIN
     Indication: TUBERCULOSIS
     Dosage: 50 MG, ONCE
  3. RIFAMPIN. [Suspect]
     Active Substance: RIFAMPIN
     Indication: MASTITIS
     Dosage: 450 MG, ONCE

REACTIONS (4)
  - Sepsis [Fatal]
  - Anaphylactic shock [Fatal]
  - Pneumonia bacterial [Fatal]
  - Acute respiratory distress syndrome [Fatal]
